FAERS Safety Report 15775012 (Version 1)
Quarter: 2018Q4

REPORT INFORMATION
  Report Type: Spontaneous
  Country: US (occurrence: US)
  Receive Date: 20181231
  Receipt Date: 20181231
  Transmission Date: 20190205
  Serious: No
  Sender: FDA-Public Use
  Company Number: US-DRREDDYS-USA/USA/18/0104735

PATIENT
  Age: 79 Year
  Sex: Female

DRUGS (1)
  1. NICOTINE. [Suspect]
     Active Substance: NICOTINE
     Indication: SMOKING CESSATION THERAPY
     Route: 061

REACTIONS (6)
  - Pruritus [Recovered/Resolved]
  - Overdose [Unknown]
  - Drug ineffective [Unknown]
  - Treatment noncompliance [Unknown]
  - Rash [Unknown]
  - Erythema [Unknown]
